FAERS Safety Report 18045121 (Version 1)
Quarter: 2020Q3

REPORT INFORMATION
  Report Type: Spontaneous
  Country: FR (occurrence: FR)
  Receive Date: 20200720
  Receipt Date: 20200720
  Transmission Date: 20201103
  Serious: Yes (Hospitalization, Other)
  Sender: FDA-Public Use
  Company Number: FR-PFIZER INC-2020274368

PATIENT
  Age: 42 Year
  Sex: Female

DRUGS (2)
  1. VENLAFAXINE HCL [Suspect]
     Active Substance: VENLAFAXINE HYDROCHLORIDE
     Dosage: 2 DF, SINGLE
     Route: 048
     Dates: start: 20200622, end: 20200622
  2. SERESTA [Suspect]
     Active Substance: OXAZEPAM
     Dosage: 50 DF, SINGLE
     Route: 048
     Dates: start: 20200622, end: 20200622

REACTIONS (3)
  - Poisoning deliberate [Unknown]
  - Disorientation [Recovered/Resolved]
  - Somnolence [Recovered/Resolved]

NARRATIVE: CASE EVENT DATE: 20200622
